FAERS Safety Report 19959694 (Version 1)
Quarter: 2021Q4

REPORT INFORMATION
  Report Type: Spontaneous
  Country: US (occurrence: US)
  Receive Date: 20211015
  Receipt Date: 20211015
  Transmission Date: 20220303
  Serious: Yes (unspecified)
  Sender: FDA-Public Use
  Company Number: None

PATIENT
  Age: 74 Year
  Sex: Male
  Weight: 70.7 kg

DRUGS (1)
  1. BENDEKA [Suspect]
     Active Substance: BENDAMUSTINE HYDROCHLORIDE
     Indication: Mantle cell lymphoma
     Dosage: ?          OTHER FREQUENCY:DAILY X2 MONTHLY;
     Route: 041
     Dates: start: 20210915

REACTIONS (1)
  - Chills [None]

NARRATIVE: CASE EVENT DATE: 20211013
